FAERS Safety Report 11639883 (Version 1)
Quarter: 2015Q4

REPORT INFORMATION
  Report Type: Spontaneous
  Country: US (occurrence: US)
  Receive Date: 20151019
  Receipt Date: 20151019
  Transmission Date: 20160304
  Serious: Yes (Hospitalization, Other)
  Sender: FDA-Public Use
  Company Number: US-WATSON-2015-22025

PATIENT
  Age: 48 Year
  Sex: Female
  Weight: 148 kg

DRUGS (2)
  1. ENOXAPARIN (UNKNOWN) [Suspect]
     Active Substance: ENOXAPARIN
     Indication: THROMBOSIS PROPHYLAXIS
     Dosage: UNK
     Route: 065
  2. HEPARIN [Suspect]
     Active Substance: HEPARIN SODIUM
     Indication: INTRAOPERATIVE CARE
     Dosage: 3000 IU, SINGLE (BOLUS, GIVEN INTRAOPERATIVELY)
     Route: 042

REACTIONS (1)
  - Heparin-induced thrombocytopenia [Recovered/Resolved]
